FAERS Safety Report 7200400-0 (Version None)
Quarter: 2010Q4

REPORT INFORMATION
  Report Type: 
  Country: None (occurrence: None)
  Receive Date: 20101214
  Receipt Date: 20101207
  Transmission Date: 20110411
  Serious: Yes (Life-Threatening)
  Sender: FDA-Public Use
  Company Number: 012729

PATIENT
  Age: 78 Year
  Sex: Male

DRUGS (3)
  1. MACUGEN [Suspect]
     Indication: CHOROIDAL NEOVASCULARISATION
     Dosage: INTRAOCULLAR
     Route: 031
  2. MACUGEN [Suspect]
     Indication: MACULAR DEGENERATION
     Dosage: INTRAOCULLAR
     Route: 031
  3. MOXIFLOXACIN HCL [Concomitant]

REACTIONS (1)
  - MYOCARDIAL INFARCTION [None]
